FAERS Safety Report 5457626-6 (Version None)
Quarter: 2007Q3

REPORT INFORMATION
  Report Type: 
  Country: None (occurrence: None)
  Receive Date: 20070918
  Receipt Date: 20070906
  Transmission Date: 20080115
  Serious: No
  Sender: FDA-Public Use
  Company Number: US-BOEHRINGER INGELHEIM PHARMACEUTICALS, INC.-2007-BP-19479BP

PATIENT
  Age: 81 Year
  Sex: Female

DRUGS (11)
  1. SPIRIVA [Suspect]
     Indication: CHRONIC OBSTRUCTIVE PULMONARY DISEASE
     Route: 055
     Dates: start: 20050801, end: 20070816
  2. SPIRIVA [Suspect]
     Indication: RESPIRATORY DISORDER
  3. HYDRALAZINE HCL [Concomitant]
  4. COREG [Concomitant]
  5. ISOSORBIDE DINITRATE [Concomitant]
  6. BUMEX [Concomitant]
  7. COUMADIN [Concomitant]
  8. SIMVASTATIN [Concomitant]
  9. PROTONIX [Concomitant]
  10. KCL TABLETS [Concomitant]
  11. AVAPRO [Concomitant]

REACTIONS (1)
  - URTICARIA [None]
